FAERS Safety Report 7737398-2 (Version None)
Quarter: 2011Q3

REPORT INFORMATION
  Report Type: 
  Country: None (occurrence: None)
  Receive Date: 20110908
  Receipt Date: 20110826
  Transmission Date: 20111222
  Serious: Yes (Hospitalization)
  Sender: FDA-Public Use
  Company Number: GB-NOVEN-11GB003099

PATIENT
  Age: 91 Year
  Sex: Female

DRUGS (3)
  1. PAROXETINE HCL [Suspect]
     Indication: DEPRESSION
     Dosage: UNK
     Route: 065
  2. ACETAMINOPHEN WITH PROPOXYPHENE HCL TAB [Concomitant]
     Indication: PRODUCT USED FOR UNKNOWN INDICATION
  3. CO-AMILOFRUSE [Concomitant]
     Indication: PRODUCT USED FOR UNKNOWN INDICATION

REACTIONS (10)
  - INTRAOCULAR PRESSURE INCREASED [None]
  - ANGLE CLOSURE GLAUCOMA [None]
  - NAUSEA [None]
  - OCULAR HYPERAEMIA [None]
  - EYE PAIN [None]
  - VISION BLURRED [None]
  - CORNEAL OEDEMA [None]
  - PUPIL FIXED [None]
  - MYDRIASIS [None]
  - DRY MOUTH [None]
